FAERS Safety Report 23511137 (Version 2)
Quarter: 2024Q1

REPORT INFORMATION
  Report Type: Spontaneous
  Country: US (occurrence: US)
  Receive Date: 20240212
  Receipt Date: 20240229
  Transmission Date: 20240410
  Serious: No
  Sender: FDA-Public Use
  Company Number: US-BIOGEN-2024BI01249564

PATIENT
  Sex: Female

DRUGS (5)
  1. VUMERITY [Suspect]
     Active Substance: DIROXIMEL FUMARATE
     Indication: Multiple sclerosis
     Dosage: TAKE 2 CAPSULES (462MG) BY MOUTH TWICE DAILY
     Route: 050
     Dates: start: 20211222
  2. ASPIRIN [Concomitant]
     Active Substance: ASPIRIN
     Route: 050
  3. MELATONIN [Concomitant]
     Active Substance: MELATONIN
     Route: 050
  4. CALCIUM\CHOLECALCIFEROL\COPPER\MAGNESIUM\MANGANESE\ZINC [Concomitant]
     Active Substance: CALCIUM\CHOLECALCIFEROL\COPPER\MAGNESIUM\MANGANESE\ZINC
     Dosage: 600-800 TAB
     Route: 050
  5. ALEVE [Concomitant]
     Active Substance: NAPROXEN SODIUM
     Route: 050

REACTIONS (6)
  - Gait disturbance [Unknown]
  - Tremor [Unknown]
  - Visual impairment [Unknown]
  - Back disorder [Unknown]
  - Cognitive disorder [Unknown]
  - Constipation [Recovered/Resolved]
